FAERS Safety Report 7085411-0 (Version None)
Quarter: 2010Q4

REPORT INFORMATION
  Report Type: 
  Country: None (occurrence: None)
  Receive Date: 20101028
  Receipt Date: 20101014
  Transmission Date: 20110411
  Serious: Yes (Hospitalization)
  Sender: FDA-Public Use
  Company Number: IND1-ES-2010-0098

PATIENT
  Age: 55 Year
  Sex: Male

DRUGS (2)
  1. INACID (INDOMETACIN) [Suspect]
     Indication: POLYMYOSITIS
     Dosage: UNKNOWN (2 IN 1 D)
     Route: 048
     Dates: start: 20100101, end: 20100917
  2. AZATIOPRINE [Suspect]
     Indication: POLYMYOSITIS
     Dosage: 150 MG (50 MG, 3 IN 1 D)
     Route: 048
     Dates: start: 20100101, end: 20100917

REACTIONS (1)
  - HYPERCHROMIC ANAEMIA [None]
